FAERS Safety Report 10252980 (Version 1)
Quarter: 2014Q2

REPORT INFORMATION
  Report Type: Spontaneous
  Country: US (occurrence: US)
  Receive Date: 20140623
  Receipt Date: 20140623
  Transmission Date: 20141212
  Serious: No
  Sender: FDA-Public Use
  Company Number: US-PFIZER INC-2014172066

PATIENT
  Age: 71 Year
  Sex: Male
  Weight: 54.42 kg

DRUGS (2)
  1. NEURONTIN [Suspect]
     Indication: POST HERPETIC NEURALGIA
     Dosage: 100MG ORAL TABLET IN MORNING AND 200 MG (TAKING TWO 100MG TABLETS AT A TIME) AT NIGHT
     Route: 048
  2. COUMADIN [Concomitant]
     Dosage: UNK

REACTIONS (1)
  - Drug ineffective [Unknown]
